FAERS Safety Report 6783221-2 (Version None)
Quarter: 2010Q2

REPORT INFORMATION
  Report Type: 
  Country: None (occurrence: None)
  Receive Date: 20100622
  Receipt Date: 20100614
  Transmission Date: 20101027
  Serious: Yes (Other)
  Sender: FDA-Public Use
  Company Number: US-JNJFOC-20100501515

PATIENT
  Sex: Male

DRUGS (4)
  1. RISPERIDONE [Suspect]
     Indication: PSYCHOTHERAPY
     Route: 048
  2. RISPERIDONE [Suspect]
     Route: 048
  3. LEXAPRO [Concomitant]
     Route: 048
  4. TRAZODONE HYDROCHLORIDE [Concomitant]
     Route: 048

REACTIONS (4)
  - ADVERSE DRUG REACTION [None]
  - CONVULSION [None]
  - EYE ROLLING [None]
  - SWOLLEN TONGUE [None]
